FAERS Safety Report 9470501 (Version 2)
Quarter: 2014Q1

REPORT INFORMATION
  Report Type: Report from Study
  Country: US (occurrence: US)
  Receive Date: 20130822
  Receipt Date: 20140110
  Transmission Date: 20141002
  Serious: Yes (Other)
  Sender: FDA-Public Use
  Company Number: US-SANOFI-AVENTIS-2013SA083693

PATIENT
  Age: 40 Year
  Sex: Female

DRUGS (8)
  1. OXALIPLATIN [Suspect]
     Indication: METASTASES TO LIVER
     Dosage: ON DAY 1; INFUSION
     Route: 013
  2. FLUOROURACIL [Concomitant]
     Indication: METASTASES TO LIVER
     Dosage: ON DAY 1
  3. BEVACIZUMAB [Concomitant]
     Indication: METASTASES TO LIVER
     Dosage: ON DAY 2
     Route: 042
  4. ALPRAZOLAM [Concomitant]
  5. FENTANYL [Concomitant]
     Dosage: TRANSMUCOSAL FENTANYL AND FENTANYL PATCH
  6. HOMATROPINE/HYDROCODONE [Concomitant]
  7. LORAZEPAM [Concomitant]
  8. METOPROLOL [Concomitant]

REACTIONS (6)
  - Hyperbilirubinaemia [Recovered/Resolved]
  - Infusion related reaction [Recovered/Resolved]
  - Hypertension [Recovered/Resolved]
  - Hypoxia [Recovered/Resolved]
  - Blood alkaline phosphatase increased [Unknown]
  - Aspartate aminotransferase increased [Recovered/Resolved]
